FAERS Safety Report 12313178 (Version 5)
Quarter: 2021Q1

REPORT INFORMATION
  Report Type: Spontaneous
  Country: NL (occurrence: NL)
  Receive Date: 20160428
  Receipt Date: 20210121
  Transmission Date: 20210419
  Serious: Yes (Hospitalization, Other)
  Sender: FDA-Public Use
  Company Number: NL-AUROBINDO-AUR-APL-2016-05462

PATIENT
  Age: 45 Year
  Sex: Female

DRUGS (23)
  1. XYLOMETAZOLINE [Concomitant]
     Active Substance: XYLOMETAZOLINE
     Dosage: 1 MG/ML ON DAILY BASIS
  2. BISACODYL. [Concomitant]
     Active Substance: BISACODYL
     Indication: WEIGHT DECREASED
     Dosage: UNK, OVERUSED
     Route: 065
  3. VENLAFAXINE [Concomitant]
     Active Substance: VENLAFAXINE HYDROCHLORIDE
     Dosage: 150 MILLIGRAM
  4. OMEPRAZOLE. [Concomitant]
     Active Substance: OMEPRAZOLE
     Indication: PRODUCT USED FOR UNKNOWN INDICATION
     Dosage: 20 MG, ONCE A DAY
     Route: 065
  5. XYLOMETAZOLINE [Concomitant]
     Active Substance: XYLOMETAZOLINE
     Indication: PRODUCT USED FOR UNKNOWN INDICATION
     Dosage: UNK, 1 MG/ML ON DAILY BASIS
     Route: 065
  6. XYLOMETAZOLINE [Concomitant]
     Active Substance: XYLOMETAZOLINE
     Dosage: 1 MG/ML ON DAILY BASIS
  7. BISACODYL. [Concomitant]
     Active Substance: BISACODYL
     Dosage: OVERUSED
  8. BISACODYL. [Concomitant]
     Active Substance: BISACODYL
     Dosage: OVERUSED
  9. VENLAFAXINE [Concomitant]
     Active Substance: VENLAFAXINE HYDROCHLORIDE
     Indication: PRODUCT USED FOR UNKNOWN INDICATION
     Dosage: 150 MG, ONCE A DAY
     Route: 065
  10. OMEPRAZOLE. [Concomitant]
     Active Substance: OMEPRAZOLE
  11. VENLAFAXINE [Concomitant]
     Active Substance: VENLAFAXINE HYDROCHLORIDE
     Dosage: 150 MILLIGRAM
  12. TRAMADOL. [Suspect]
     Active Substance: TRAMADOL
     Indication: SUICIDE ATTEMPT
     Dosage: 50 MILLIGRAM
     Route: 065
  13. XYLOMETAZOLINE [Concomitant]
     Active Substance: XYLOMETAZOLINE
     Dosage: 1 MG/ML ON DAILY BASIS
  14. VENLAFAXINE [Concomitant]
     Active Substance: VENLAFAXINE HYDROCHLORIDE
     Dosage: 150 MILLIGRAM
  15. IRBESARTAN. [Concomitant]
     Active Substance: IRBESARTAN
     Dosage: 150 MILLIGRAM
  16. CAFFEINE CITRATE;PARACETAMOL [Concomitant]
     Active Substance: ACETAMINOPHEN\CAFFEINE CITRATE
     Indication: PRODUCT USED FOR UNKNOWN INDICATION
     Dosage: UNK, PARACETAMOL 500MG, CAFFEINE 50MG ? TABLET APPROXIMATELY TEN TABLETS
     Route: 065
  17. OMEPRAZOLE. [Concomitant]
     Active Substance: OMEPRAZOLE
     Dosage: 20 MILLIGRAM
  18. IRBESARTAN. [Concomitant]
     Active Substance: IRBESARTAN
     Dosage: 150 MILLIGRAM
  19. BISACODYL. [Concomitant]
     Active Substance: BISACODYL
     Dosage: OVERUSED
  20. OMEPRAZOLE. [Concomitant]
     Active Substance: OMEPRAZOLE
  21. IRBESARTAN. [Concomitant]
     Active Substance: IRBESARTAN
     Indication: PRODUCT USED FOR UNKNOWN INDICATION
     Dosage: 150 MG, ONCE A DAY
     Route: 065
  22. PROMETHAZINE [Suspect]
     Active Substance: PROMETHAZINE HYDROCHLORIDE
     Indication: SUICIDE ATTEMPT
     Dosage: UNK
     Route: 065
  23. IRBESARTAN. [Concomitant]
     Active Substance: IRBESARTAN
     Dosage: 150 MILLIGRAM

REACTIONS (5)
  - Toxicity to various agents [Recovered/Resolved]
  - Prescription drug used without a prescription [Unknown]
  - Suicide attempt [Recovered/Resolved]
  - Poisoning [Recovered/Resolved]
  - Anticholinergic syndrome [Recovered/Resolved]

NARRATIVE: CASE EVENT DATE: 20141031
